FAERS Safety Report 4479414-X (Version None)
Quarter: 2004Q4

REPORT INFORMATION
  Report Type: 
  Country: None (occurrence: None)
  Receive Date: 20041015
  Receipt Date: 20041006
  Transmission Date: 20050328
  Serious: Yes (Other)
  Sender: FDA-Public Use
  Company Number: 2004237029CA

PATIENT
  Age: 37 Year
  Sex: Female
  Weight: 59.9 kg

DRUGS (1)
  1. DEPO-PROVERA [Suspect]
     Indication: MENORRHAGIA
     Dosage: 150MG/10 3 WKS, 1ST INJECTION, INTRAMUSCULAR
     Route: 030
     Dates: start: 20040712, end: 20040712

REACTIONS (5)
  - BLOOD GLUCOSE INCREASED [None]
  - BRONCHITIS [None]
  - METRORRHAGIA [None]
  - PNEUMONIA [None]
  - SWELLING [None]
